FAERS Safety Report 5075129-8 (Version None)
Quarter: 2006Q3

REPORT INFORMATION
  Report Type: 
  Country: None (occurrence: None)
  Receive Date: 20060714
  Receipt Date: 20060510
  Transmission Date: 20061208
  Serious: No
  Sender: FDA-Public Use
  Company Number: 2006SP002011

PATIENT
  Age: 85 Year
  Sex: Female
  Weight: 44.4525 kg

DRUGS (9)
  1. LUNESTA [Suspect]
     Indication: SOMNOLENCE
     Dosage: 3 MG;HS;ORAL
     Route: 048
     Dates: start: 20060505
  2. RESTORIL [Concomitant]
  3. LABETALOL HCL [Concomitant]
  4. AVAPRO [Concomitant]
  5. VASOTEC [Concomitant]
  6. SYNTHROID [Concomitant]
  7. PREVACID [Concomitant]
  8. WARFARIN [Concomitant]
  9. VITAMINS [Concomitant]

REACTIONS (2)
  - DRUG INEFFECTIVE [None]
  - INITIAL INSOMNIA [None]
